FAERS Safety Report 8975622 (Version 1)
Quarter: 2012Q4

REPORT INFORMATION
  Report Type: 
  Country: FR (occurrence: FR)
  Receive Date: 20121219
  Receipt Date: 20121219
  Transmission Date: 20130627
  Serious: Yes (Hospitalization)
  Sender: FDA-Public Use
  Company Number: PHHY2012FR117060

PATIENT

DRUGS (1)
  1. AFINITOR [Suspect]
     Dosage: UNK

REACTIONS (2)
  - Hypophagia [Unknown]
  - Mucosal inflammation [Unknown]
